FAERS Safety Report 7283879-8 (Version None)
Quarter: 2011Q1

REPORT INFORMATION
  Report Type: 
  Country: None (occurrence: None)
  Receive Date: 20110209
  Receipt Date: 20110125
  Transmission Date: 20110831
  Serious: Yes (Disabling)
  Sender: FDA-Public Use
  Company Number: GB-PFIZER INC-2010024584

PATIENT
  Age: 70 Year
  Sex: Male

DRUGS (3)
  1. GEMTUZUMAB OZOGAMICIN [Suspect]
     Indication: ACUTE MYELOID LEUKAEMIA
     Dosage: UNK
     Route: 042
     Dates: start: 20090915, end: 20091221
  2. CYTARABINE [Suspect]
     Dosage: UNK
     Route: 042
     Dates: start: 20090915, end: 20091221
  3. DAUNORUBICIN HCL [Suspect]
     Dosage: UNK
     Route: 042
     Dates: start: 20090915, end: 20091221

REACTIONS (2)
  - CARPAL TUNNEL SYNDROME [None]
  - TENOSYNOVITIS [None]
